FAERS Safety Report 4636277-7 (Version None)
Quarter: 2005Q2

REPORT INFORMATION
  Report Type: 
  Country: None (occurrence: None)
  Receive Date: 20050415
  Receipt Date: 20040511
  Transmission Date: 20051028
  Serious: No
  Sender: FDA-Public Use
  Company Number: US-BRISTOL-MYERS SQUIBB COMPANY-12586988

PATIENT
  Age: 70 Year
  Sex: Female

DRUGS (2)
  1. CARBOPLATIN [Suspect]
     Indication: PELVIC MASS
     Dates: start: 20031107, end: 20031107
  2. CYTOXAN [Suspect]
     Indication: PELVIC MASS
     Dates: start: 20031107, end: 20031107

REACTIONS (1)
  - PRURITUS [None]
